FAERS Safety Report 7744881-2 (Version None)
Quarter: 2011Q3

REPORT INFORMATION
  Report Type: 
  Country: None (occurrence: None)
  Receive Date: 20110912
  Receipt Date: 20110906
  Transmission Date: 20111222
  Serious: Yes (Hospitalization)
  Sender: FDA-Public Use
  Company Number: US-AMGEN-USASP2011045475

PATIENT
  Sex: Female

DRUGS (2)
  1. ENBREL [Suspect]
     Indication: PSORIATIC ARTHROPATHY
  2. ENBREL [Suspect]
     Indication: PSORIASIS
     Dosage: 25 MG, 2 TIMES/WK
     Dates: start: 20050901

REACTIONS (6)
  - UTERINE HAEMORRHAGE [None]
  - FEAR OF NEEDLES [None]
  - BURSITIS [None]
  - EXOSTOSIS [None]
  - INJECTION SITE PAIN [None]
  - TOOTH ABSCESS [None]
